FAERS Safety Report 8840636 (Version 3)
Quarter: 2014Q1

REPORT INFORMATION
  Report Type: Spontaneous
  Country: US (occurrence: US)
  Receive Date: 20121015
  Receipt Date: 20140313
  Transmission Date: 20141002
  Serious: No
  Sender: FDA-Public Use
  Company Number: US-ASTRAZENECA-2012SE72723

PATIENT
  Age: 81 Year
  Sex: Male
  Weight: 81.6 kg

DRUGS (26)
  1. NEXIUM [Suspect]
     Indication: BARRETT^S OESOPHAGUS
     Route: 048
  2. NEXIUM [Suspect]
     Indication: HIATUS HERNIA
     Route: 048
  3. NEXIUM [Suspect]
     Indication: OESOPHAGEAL PAIN
     Route: 048
  4. NEXIUM [Suspect]
     Indication: BARRETT^S OESOPHAGUS
     Route: 048
  5. NEXIUM [Suspect]
     Indication: HIATUS HERNIA
     Route: 048
  6. NEXIUM [Suspect]
     Indication: OESOPHAGEAL PAIN
     Route: 048
  7. NEXIUM [Suspect]
     Indication: BARRETT^S OESOPHAGUS
     Route: 048
     Dates: start: 2010, end: 20140102
  8. NEXIUM [Suspect]
     Indication: HIATUS HERNIA
     Route: 048
     Dates: start: 2010, end: 20140102
  9. NEXIUM [Suspect]
     Indication: OESOPHAGEAL PAIN
     Route: 048
     Dates: start: 2010, end: 20140102
  10. PRILOSEC OTC [Suspect]
     Indication: GASTROOESOPHAGEAL REFLUX DISEASE
     Route: 048
     Dates: start: 20140102
  11. PRILOSEC OTC [Suspect]
     Indication: DYSPEPSIA
     Route: 048
     Dates: start: 20140102
  12. LISINOPRIL [Suspect]
     Indication: BLOOD PRESSURE ABNORMAL
     Route: 048
  13. METOPROLOL ER [Suspect]
     Indication: BLOOD PRESSURE ABNORMAL
     Route: 048
  14. ASPIRIN [Concomitant]
     Indication: ANTICOAGULANT THERAPY
  15. ALLOPURINOL [Concomitant]
     Indication: GOUT
  16. DICLOFENAC [Concomitant]
     Indication: BLOOD CHOLESTEROL ABNORMAL
  17. LEVOTHYROXINE [Concomitant]
     Indication: THYROID DISORDER
  18. GABAPENTIN [Concomitant]
     Indication: NEUROPATHY PERIPHERAL
  19. CARB LEVO [Concomitant]
     Indication: PARKINSON^S DISEASE
  20. KLOR CON [Concomitant]
     Indication: SUPPLEMENTATION THERAPY
  21. OXYBUTININ [Concomitant]
     Indication: MICTURITION URGENCY
  22. PRIVASTATIN [Concomitant]
  23. B12 [Concomitant]
     Indication: SUPPLEMENTATION THERAPY
  24. MULTIVITAIMMIN [Concomitant]
     Indication: SUPPLEMENTATION THERAPY
  25. FISH OIL [Concomitant]
     Indication: SUPPLEMENTATION THERAPY
  26. TUMS [Concomitant]
     Indication: DYSPEPSIA

REACTIONS (16)
  - Parkinson^s disease [Unknown]
  - Dysgraphia [Unknown]
  - Gout [Unknown]
  - Micturition urgency [Unknown]
  - Thyroid disorder [Unknown]
  - Hypertension [Unknown]
  - Neuropathy peripheral [Unknown]
  - Blood cholesterol abnormal [Unknown]
  - Gastrooesophageal reflux disease [Unknown]
  - Chest pain [Unknown]
  - Barrett^s oesophagus [Unknown]
  - Dyspepsia [Unknown]
  - Memory impairment [Unknown]
  - Drug ineffective [Unknown]
  - Off label use [Unknown]
  - Drug dose omission [Unknown]
